FAERS Safety Report 6120066-0 (Version None)
Quarter: 2009Q1

REPORT INFORMATION
  Report Type: 
  Country: None (occurrence: None)
  Receive Date: 20090311
  Receipt Date: 20090227
  Transmission Date: 20090719
  Serious: Yes (Other)
  Sender: FDA-Public Use
  Company Number: CHNY2008FR04479

PATIENT
  Age: 57 Year
  Sex: Male
  Weight: 74 kg

DRUGS (9)
  1. HYOSCINE HBR HYT [Suspect]
     Indication: SALIVARY HYPERSECRETION
     Dosage: 1 MG, Q72H, TRANSDERMAL
     Route: 062
     Dates: start: 20071115, end: 20081210
  2. DEPAKENE [Concomitant]
  3. FLUPHENAZINE HCL [Concomitant]
  4. HALDOL (HALOPERIDOL DECONATE) [Concomitant]
  5. DIHYDROERGOTAMINE (DIHYDROETERGOTAMINE) [Concomitant]
  6. PRAZEPAM [Concomitant]
  7. NOZINAN (LEVOMEPROMAZINE) [Concomitant]
  8. HEPT-A-MYL (HEPTAMINOL HYDROCHLORIDE) [Concomitant]
  9. DHE SANDOZ [Concomitant]

REACTIONS (6)
  - CONCOMITANT DISEASE AGGRAVATED [None]
  - HYPERTENSION [None]
  - HYPOTENSION [None]
  - MALAISE [None]
  - SINUS BRADYCARDIA [None]
  - TACHYCARDIA [None]
